FAERS Safety Report 14982386 (Version 1)
Quarter: 2018Q2

REPORT INFORMATION
  Report Type: Spontaneous
  Country: US (occurrence: US)
  Receive Date: 20180517
  Receipt Date: 20180517
  Transmission Date: 20180711
  Serious: Yes (Other)
  Sender: FDA-Public Use
  Company Number: None

PATIENT
  Age: 94 Year
  Sex: Male
  Weight: 86.4 kg

DRUGS (2)
  1. IMBRUVICA [Concomitant]
     Active Substance: IBRUTINIB
     Dates: start: 20160115, end: 20180516
  2. IBRUTINIB [Suspect]
     Active Substance: IBRUTINIB
     Indication: CHRONIC LYMPHOCYTIC LEUKAEMIA
     Route: 048
     Dates: start: 20160115, end: 20180516

REACTIONS (1)
  - Deafness [None]

NARRATIVE: CASE EVENT DATE: 20180516
